FAERS Safety Report 7099241-7 (Version None)
Quarter: 2010Q4

REPORT INFORMATION
  Report Type: 
  Country: None (occurrence: None)
  Receive Date: 20101112
  Receipt Date: 20101102
  Transmission Date: 20110411
  Serious: Yes (Other)
  Sender: FDA-Public Use
  Company Number: US-JNJFOC-20101102932

PATIENT
  Sex: Female
  Weight: 56.7 kg

DRUGS (1)
  1. ORTHO TRI-CYCLEN LO [Suspect]
     Indication: CONTRACEPTION
     Route: 048

REACTIONS (5)
  - ANXIETY [None]
  - CHOLELITHIASIS [None]
  - GALLBLADDER DISORDER [None]
  - INAPPROPRIATE SCHEDULE OF DRUG ADMINISTRATION [None]
  - TABLET ISSUE [None]
